FAERS Safety Report 8756914 (Version 2)
Quarter: 2012Q4

REPORT INFORMATION
  Report Type: 
  Country: US (occurrence: US)
  Receive Date: 20120828
  Receipt Date: 20120918
  Transmission Date: 20130627
  Serious: Yes (Other)
  Sender: FDA-Public Use
  Company Number: US-PFIZER INC-2012209352

PATIENT
  Age: 48 Year
  Sex: Female

DRUGS (7)
  1. LIPITOR [Suspect]
     Dosage: 80 mg, 1x/day (1 tab)
     Route: 048
  2. ZOLOFT [Suspect]
     Dosage: 50 mg, 1x/day (1 tab)
     Route: 048
  3. LEVEMIR [Concomitant]
     Dosage: UNK
  4. LOSARTAN POTASSIUM [Concomitant]
     Dosage: UNK
  5. ASA [Concomitant]
     Dosage: UNK
  6. NOVOLOG [Concomitant]
     Dosage: UNK
  7. LORATADINE [Concomitant]
     Dosage: UNK

REACTIONS (1)
  - Cerebrovascular accident [Unknown]
